FAERS Safety Report 8494334-1 (Version None)
Quarter: 2012Q3

REPORT INFORMATION
  Report Type: 
  Country: None (occurrence: None)
  Receive Date: 20120709
  Receipt Date: 20120702
  Transmission Date: 20120928
  Serious: Yes (Hospitalization)
  Sender: FDA-Public Use
  Company Number: BR-US-EMD SERONO, INC.-7135029

PATIENT
  Sex: Male

DRUGS (1)
  1. REBIF [Suspect]
     Indication: RELAPSING-REMITTING MULTIPLE SCLEROSIS
     Dates: start: 20110301

REACTIONS (5)
  - CHEST PAIN [None]
  - DYSURIA [None]
  - MICTURITION URGENCY [None]
  - SPINAL PAIN [None]
  - GASTROINTESTINAL DISORDER [None]
